FAERS Safety Report 6376356-X (Version None)
Quarter: 2009Q3

REPORT INFORMATION
  Report Type: 
  Country: None (occurrence: None)
  Receive Date: 20090925
  Receipt Date: 20090918
  Transmission Date: 20100115
  Serious: Yes (Hospitalization, Disabling)
  Sender: FDA-Public Use
  Company Number: BR-ALLERGAN-0903682US

PATIENT
  Age: 36 Year
  Sex: Male
  Weight: 75 kg

DRUGS (2)
  1. BOTULINUM TOXIN TYPE A [Suspect]
     Indication: NEUROGENIC BLADDER
     Dosage: UNK, SINGLE
     Route: 030
     Dates: start: 20090106, end: 20090106
  2. BLINDED PLACEBO [Suspect]
     Indication: NEUROGENIC BLADDER
     Dosage: UNK, SINGLE
     Route: 030
     Dates: start: 20090106, end: 20090106

REACTIONS (1)
  - MUSCULAR WEAKNESS [None]
